FAERS Safety Report 9361024 (Version 1)
Quarter: 2013Q2

REPORT INFORMATION
  Report Type: Spontaneous
  Country: US (occurrence: US)
  Receive Date: 20130621
  Receipt Date: 20130621
  Transmission Date: 20140414
  Serious: Yes (Other)
  Sender: FDA-Public Use
  Company Number: US-VERTEX PHARMACEUTICALS INC-2013-007264

PATIENT
  Age: 28 Year
  Sex: Male

DRUGS (4)
  1. INCIVEK [Suspect]
     Indication: HEPATITIS C
     Dosage: UNK
     Route: 048
  2. RIBAVIRIN [Suspect]
     Indication: HEPATITIS C
     Dosage: 1000 MG, UNK
  3. RIBAVIRIN [Suspect]
     Dosage: 400 MG, UNK
  4. PEGINTERFERON [Suspect]
     Indication: HEPATITIS C
     Dosage: UNK

REACTIONS (1)
  - Pancreatitis acute [Unknown]
